FAERS Safety Report 14586994 (Version 6)
Quarter: 2018Q3

REPORT INFORMATION
  Report Type: Report from Study
  Country: FR (occurrence: FR)
  Receive Date: 20180301
  Receipt Date: 20180709
  Transmission Date: 20181010
  Serious: Yes (Hospitalization, Other)
  Sender: FDA-Public Use
  Company Number: FR-BRISTOL-MYERS SQUIBB COMPANY-BMS-2018-017415

PATIENT
  Age: 87 Year
  Sex: Male
  Weight: 76 kg

DRUGS (12)
  1. PRADAXA [Concomitant]
     Active Substance: DABIGATRAN ETEXILATE MESYLATE
     Indication: PRODUCT USED FOR UNKNOWN INDICATION
     Dosage: 110 MG, BID
     Route: 065
     Dates: start: 201709
  2. ATORVASTATIN [Concomitant]
     Active Substance: ATORVASTATIN
     Indication: DYSLIPIDAEMIA
     Dosage: 20 MG, DAILY
     Route: 048
     Dates: start: 20171113
  3. LANTUS [Concomitant]
     Active Substance: INSULIN GLARGINE
     Indication: DIABETES MELLITUS
     Dosage: 30 IU, DAILY
     Route: 048
     Dates: start: 20071113
  4. ALDACTONE [Concomitant]
     Active Substance: SPIRONOLACTONE
     Indication: CARDIAC FAILURE
     Dosage: 25 MG, DAILY
     Route: 048
     Dates: start: 20171113
  5. LANSOPRAZOLE. [Concomitant]
     Active Substance: LANSOPRAZOLE
     Indication: PROPHYLAXIS AGAINST GASTROINTESTINAL ULCER
     Dosage: 30 MG, DAILY
     Route: 048
     Dates: start: 20171113
  6. RAMIPRIL. [Concomitant]
     Active Substance: RAMIPRIL
     Indication: HYPERTENSION
     Dosage: 1.25 MG, DAILY
     Route: 065
     Dates: start: 20171113
  7. BISOCE [Concomitant]
     Active Substance: BISOPROLOL
     Indication: HYPERTENSION
     Dosage: 2.5 MG, DAILY
     Route: 048
     Dates: start: 20171113
  8. LEVOTHYROX [Concomitant]
     Active Substance: LEVOTHYROXINE
     Indication: THYROID DISORDER
     Dosage: 150 ?G, DAILY
     Route: 048
     Dates: start: 20171113
  9. APIXABAN [Suspect]
     Active Substance: APIXABAN
     Indication: PRODUCT USED FOR UNKNOWN INDICATION
     Dosage: 2.5 MG, BID
     Route: 048
     Dates: start: 20180112, end: 20180504
  10. CLOPIDOGREL [Concomitant]
     Active Substance: CLOPIDOGREL BISULFATE
     Indication: PRODUCT USED FOR UNKNOWN INDICATION
     Dosage: 1 TAB, QD
     Route: 065
  11. APIXABAN [Suspect]
     Active Substance: APIXABAN
     Indication: PRODUCT USED FOR UNKNOWN INDICATION
     Dosage: 5 MG, DAILY
     Route: 048
     Dates: start: 20171113, end: 20171220
  12. KARDEGIC [Suspect]
     Active Substance: ASPIRIN DL-LYSINE
     Indication: CORONARY ARTERY DISEASE
     Dosage: 75 MG, DAILY
     Route: 048
     Dates: start: 20171113

REACTIONS (2)
  - Bladder cancer [Recovered/Resolved]
  - Urinary retention [Unknown]

NARRATIVE: CASE EVENT DATE: 20171220
